FAERS Safety Report 4305943-5 (Version None)
Quarter: 2004Q1

REPORT INFORMATION
  Report Type: 
  Country: None (occurrence: None)
  Receive Date: 20040225
  Receipt Date: 20040204
  Transmission Date: 20041129
  Serious: Yes (Other)
  Sender: FDA-Public Use
  Company Number: JP_040202612

PATIENT
  Age: 14 Year
  Sex: Male
  Weight: 44 kg

DRUGS (1)
  1. SOMATROPIN [Suspect]
     Indication: GROWTH HORMONE DEFICIENCY
     Dosage: 0.66 IU/KG/WEEK
     Dates: start: 19970101, end: 20020101

REACTIONS (4)
  - ACUTE LYMPHOCYTIC LEUKAEMIA [None]
  - KARYOTYPE ANALYSIS ABNORMAL [None]
  - PANCYTOPENIA [None]
  - PURPURA [None]
